FAERS Safety Report 13317729 (Version 1)
Quarter: 2017Q1

REPORT INFORMATION
  Report Type: Spontaneous
  Country: US (occurrence: US)
  Receive Date: 20170310
  Receipt Date: 20170310
  Transmission Date: 20170428
  Serious: No
  Sender: FDA-Public Use
  Company Number: US-PFIZER INC-2017094226

PATIENT
  Age: 67 Year
  Sex: Male
  Weight: 80.73 kg

DRUGS (9)
  1. SOLU-CORTEF [Concomitant]
     Active Substance: HYDROCORTISONE SODIUM SUCCINATE
     Indication: ADRENAL INSUFFICIENCY
     Dosage: 100 MG, AS NEEDED
     Route: 030
  2. TEMOVATE [Concomitant]
     Active Substance: CLOBETASOL PROPIONATE
     Dosage: 0.05 %, APPLY TO PALMS OF HANDS AND SOLE OF FEET
  3. SUTENT [Suspect]
     Active Substance: SUNITINIB MALATE
     Dosage: 50 MG, CYCLIC (2 WEEKS ON, ONE WEEK OFF)
     Route: 048
     Dates: start: 201606
  4. CREON [Concomitant]
     Active Substance: PANCRELIPASE AMYLASE\PANCRELIPASE LIPASE\PANCRELIPASE PROTEASE
     Dosage: 24000 IU, UNK
  5. SUTENT [Suspect]
     Active Substance: SUNITINIB MALATE
     Indication: METASTATIC RENAL CELL CARCINOMA
     Dosage: 50 MG, CYCLIC(4 WEEKS ON AND 2 WEEKS OFF)
     Route: 048
     Dates: start: 20160323
  6. SUTENT [Suspect]
     Active Substance: SUNITINIB MALATE
     Dosage: 37.5 MG, CYCLIC (1 TABLET DAILY, 2 WEEKS ON, 1 WEEK OFF)
     Route: 048
     Dates: start: 20160922
  7. CARMOL [Concomitant]
     Indication: SKIN EXFOLIATION
     Dosage: 20%, APPLY TO HANDS AND FEET
     Route: 061
  8. CORTEF [Concomitant]
     Active Substance: HYDROCORTISONE
     Dosage: 15 MG, DAILY (TAKE TWO TABLETS IN THE MORNING AND ONE IN THE LATE AFTERNOON)
  9. LEVOTHROID [Concomitant]
     Active Substance: LEVOTHYROXINE SODIUM
     Dosage: 25 UG, DAILY (1 TABLET BY MOUTH)
     Route: 048

REACTIONS (5)
  - Neck pain [Unknown]
  - Palmar-plantar erythrodysaesthesia syndrome [Recovering/Resolving]
  - Arthralgia [Unknown]
  - Fatigue [Unknown]
  - Neoplasm progression [Unknown]

NARRATIVE: CASE EVENT DATE: 20170110
